FAERS Safety Report 4658326-2 (Version None)
Quarter: 2005Q2

REPORT INFORMATION
  Report Type: 
  Country: None (occurrence: None)
  Receive Date: 20050510
  Receipt Date: 20050510
  Transmission Date: 20051028
  Serious: Yes (Hospitalization)
  Sender: FDA-Public Use
  Company Number: None

PATIENT
  Age: 41 Year
  Sex: Male
  Weight: 73.0291 kg

DRUGS (1)
  1. GATIFLOXACIN [Suspect]
     Indication: EAR INFECTION
     Dosage: 400MG  QD  ORAL
     Route: 048
     Dates: start: 20050915, end: 20051108

REACTIONS (4)
  - DIZZINESS [None]
  - FLUSHING [None]
  - NERVOUSNESS [None]
  - TACHYCARDIA [None]
